FAERS Safety Report 7704383-6 (Version None)
Quarter: 2011Q3

REPORT INFORMATION
  Report Type: 
  Country: None (occurrence: None)
  Receive Date: 20110823
  Receipt Date: 20110809
  Transmission Date: 20111222
  Serious: Yes (Hospitalization)
  Sender: FDA-Public Use
  Company Number: JP-UCBSA-038988

PATIENT
  Sex: Female

DRUGS (13)
  1. METHOTREXATE [Concomitant]
  2. MELOXICAM [Concomitant]
     Dosage: DAILY DOSE:10MG
  3. OMEPRAZOLE [Concomitant]
     Dosage: DAILY DOSE:10MG
  4. CERTOLIZUMAB PEGOL [Suspect]
     Indication: RHEUMATOID ARTHRITIS
     Dosage: 02/FEB/2011 - 18/JAN/2011;200MG/2WEEKS
     Route: 058
     Dates: start: 20110201
  5. PREDNISOLONE [Concomitant]
     Dosage: DAILY DOSE:3MG
     Dates: start: 20110202
  6. REBAMIPIDE [Concomitant]
     Dosage: DAILY DOSE:300MG
  7. OLOPATADINE HYDROCHLORIDE [Concomitant]
     Dosage: DAILY DOSE:10MG
     Dates: start: 20110426
  8. AMBROXOL HYDROCHLORIDE [Concomitant]
     Dosage: DAILY DOSE:45MG
     Dates: start: 20110621
  9. NIFEDIPINE [Concomitant]
  10. IRBESARTAN [Concomitant]
     Dosage: DAILY DOSE:100MG
  11. DIPYRIDAMOLE [Concomitant]
     Dosage: DAILY DOSE:150MG
  12. FOLIC ACID [Concomitant]
     Dosage: DAILY DOSE:5MG
  13. AROTINOLOL HYDROCHLORIDE [Concomitant]
     Dosage: DAILY DOSE:10MG

REACTIONS (1)
  - PNEUMONIA [None]
